FAERS Safety Report 18326660 (Version 1)
Quarter: 2020Q3

REPORT INFORMATION
  Report Type: Spontaneous
  Country: US (occurrence: US)
  Receive Date: 20200930
  Receipt Date: 20200930
  Transmission Date: 20201103
  Serious: No
  Sender: FDA-Public Use
  Company Number: US-SHIRE-US202031403

PATIENT
  Age: 28 Year
  Sex: Male
  Weight: 131.52 kg

DRUGS (1)
  1. HYQVIA [Suspect]
     Active Substance: HUMAN IMMUNOGLOBULIN G\HYALURONIDASE RECOMBINANT HUMAN
     Indication: PRODUCT USED FOR UNKNOWN INDICATION
     Dosage: 30 GRAM, UNKNOWN
     Route: 065

REACTIONS (4)
  - Weight decreased [Unknown]
  - Blister rupture [Unknown]
  - Infusion site scab [Unknown]
  - Infusion site vesicles [Unknown]
